FAERS Safety Report 6978172-4 (Version None)
Quarter: 2010Q3

REPORT INFORMATION
  Report Type: 
  Country: None (occurrence: None)
  Receive Date: 20100913
  Receipt Date: 20100901
  Transmission Date: 20110219
  Serious: Yes (Other)
  Sender: FDA-Public Use
  Company Number: US-BAYER-201032451NA

PATIENT
  Age: 30 Year
  Sex: Female

DRUGS (1)
  1. MIRENA [Suspect]
     Indication: CONTRACEPTION
     Route: 015
     Dates: start: 20100601, end: 20100901

REACTIONS (5)
  - DEVICE DISLOCATION [None]
  - MIGRAINE [None]
  - NAUSEA [None]
  - SYNCOPE [None]
  - UTERINE PERFORATION [None]
